FAERS Safety Report 23509926 (Version 5)
Quarter: 2024Q2

REPORT INFORMATION
  Report Type: Other
  Country: US (occurrence: US)
  Receive Date: 20240211
  Receipt Date: 20240512
  Transmission Date: 20240716
  Serious: No
  Sender: FDA-Public Use
  Company Number: US-TRAVERE-2024TVT00079

PATIENT
  Sex: Female

DRUGS (6)
  1. FILSPARI [Suspect]
     Active Substance: SPARSENTAN
     Indication: IgA nephropathy
     Route: 048
  2. FILSPARI [Suspect]
     Active Substance: SPARSENTAN
     Indication: Haematuria
     Route: 048
     Dates: start: 20240208, end: 202402
  3. FILSPARI [Suspect]
     Active Substance: SPARSENTAN
     Route: 048
  4. BIOTIN [Concomitant]
     Active Substance: BIOTIN
  5. MIRENA [Concomitant]
     Active Substance: LEVONORGESTREL
  6. ALLEGRA ALLERGY [Concomitant]
     Active Substance: FEXOFENADINE HYDROCHLORIDE

REACTIONS (7)
  - Urticaria [Unknown]
  - Pruritus [Unknown]
  - COVID-19 [Unknown]
  - Abdominal pain upper [Unknown]
  - Illness [Unknown]
  - Dysstasia [Unknown]
  - Wrong technique in product usage process [Unknown]
